FAERS Safety Report 21249414 (Version 7)
Quarter: 2025Q3

REPORT INFORMATION
  Report Type: Report from Study
  Country: US (occurrence: US)
  Receive Date: 20220824
  Receipt Date: 20250812
  Transmission Date: 20251020
  Serious: Yes (Hospitalization, Other)
  Sender: TAKEDA
  Company Number: US-TAKEDA-2022TUS058868

PATIENT
  Age: 63 Year
  Sex: Male

DRUGS (3)
  1. ADVATE [Suspect]
     Active Substance: ANTIHEMOPHILIC FACTOR, HUMAN RECOMBINANT
     Indication: Post procedural complication
  2. ADVATE [Suspect]
     Active Substance: ANTIHEMOPHILIC FACTOR, HUMAN RECOMBINANT
     Dosage: 4000 INTERNATIONAL UNIT, BID
  3. ADVATE [Suspect]
     Active Substance: ANTIHEMOPHILIC FACTOR, HUMAN RECOMBINANT

REACTIONS (8)
  - Fall [Unknown]
  - Haemorrhage [Recovered/Resolved]
  - Tongue haemorrhage [Recovered/Resolved]
  - Seizure [Unknown]
  - Cerebral haemorrhage [Unknown]
  - COVID-19 [Unknown]
  - Tongue biting [Unknown]
  - Ear infection [Unknown]

NARRATIVE: CASE EVENT DATE: 20220811
